FAERS Safety Report 9575312 (Version 2)
Quarter: 2013Q4

REPORT INFORMATION
  Report Type: Report from Study
  Country: BR (occurrence: BR)
  Receive Date: 20131001
  Receipt Date: 20131104
  Transmission Date: 20140711
  Serious: Yes (Other)
  Sender: FDA-Public Use
  Company Number: PHHY2013BR107146

PATIENT
  Age: 68 Year
  Sex: Male
  Weight: 76 kg

DRUGS (4)
  1. INFLUENZA VIRUS VACC SEASONAL INN [Suspect]
     Indication: IMMUNISATION
     Dosage: 1 DF
  2. AMLODIPINE [Suspect]
     Indication: HYPERTENSION
     Dosage: UNK UKN, UNK
  3. ENALAPRIL [Concomitant]
     Indication: HYPERTENSION
     Dosage: UNK UKN, UNK
  4. HYDROCHLOROTHIAZIDE [Concomitant]
     Indication: HYPERTENSION
     Dosage: UNK UKN, UNK

REACTIONS (8)
  - Chronic obstructive pulmonary disease [Recovering/Resolving]
  - Breath sounds abnormal [Unknown]
  - Lung hyperinflation [Unknown]
  - Wheezing [Unknown]
  - Dyspnoea [Unknown]
  - Productive cough [Unknown]
  - Infective exacerbation of chronic obstructive airways disease [Unknown]
  - Cardiomegaly [Unknown]
